FAERS Safety Report 8477990-3 (Version None)
Quarter: 2012Q2

REPORT INFORMATION
  Report Type: 
  Country: None (occurrence: None)
  Receive Date: 20120629
  Receipt Date: 20120621
  Transmission Date: 20120825
  Serious: Yes (Hospitalization)
  Sender: FDA-Public Use
  Company Number: US-BAYER-2012-019500

PATIENT
  Age: 18 Year
  Sex: Female
  Weight: 66.667 kg

DRUGS (10)
  1. VITAMIN AND MINERAL PRENATAL SUPPLEMENT W/ FOLIC ACID CAP [Concomitant]
     Dosage: UNK
     Route: 048
     Dates: start: 20090823
  2. DICYCLOMINE [Concomitant]
     Dosage: 20 MG, UNK
     Route: 048
     Dates: start: 20091030
  3. PERMETHRIN [Concomitant]
     Dosage: 1 %, UNK
     Route: 061
     Dates: start: 20090916
  4. ACETAMINOPHEN [Concomitant]
     Dosage: 650 MG, UNK
     Route: 048
     Dates: start: 20090823
  5. TYLENOL W/ CODEINE NO. 3 [Concomitant]
     Dosage: UNK
     Route: 048
     Dates: start: 20090906
  6. PHENERGAN HCL [Concomitant]
     Dosage: UNK
     Dates: start: 20090903
  7. FUROSEMIDE [Concomitant]
     Dosage: 20 MG, UNK
     Route: 048
     Dates: start: 20090908
  8. MACROBID [Concomitant]
     Dosage: 100 MG, UNK
     Route: 048
     Dates: start: 20090828
  9. STADOL [Concomitant]
     Dosage: UNK
     Dates: start: 20090903
  10. YAZ [Suspect]
     Dosage: UNK
     Dates: start: 20080901, end: 20091001

REACTIONS (5)
  - CHOLECYSTECTOMY [None]
  - INJURY [None]
  - PANCREATITIS [None]
  - CHOLECYSTITIS CHRONIC [None]
  - PAIN [None]
